FAERS Safety Report 4763955-1 (Version None)
Quarter: 2005Q3

REPORT INFORMATION
  Report Type: 
  Country: None (occurrence: None)
  Receive Date: 20050906
  Receipt Date: 20050527
  Transmission Date: 20060218
  Serious: No
  Sender: FDA-Public Use
  Company Number: 2005-BP-08751BP

PATIENT
  Age: 77 Year
  Sex: Male

DRUGS (2)
  1. SPIRIVA [Suspect]
     Indication: EMPHYSEMA
     Dosage: 18 MCG (18 MCG, QD) IH
     Route: 055
     Dates: start: 20050401, end: 20050526
  2. SPIRIVA [Suspect]
     Indication: PULMONARY FIBROSIS
     Dosage: 18 MCG (18 MCG, QD) IH
     Route: 055
     Dates: start: 20050401, end: 20050526

REACTIONS (1)
  - EYE PRURITUS [None]
